FAERS Safety Report 8921899 (Version 1)
Quarter: 2012Q4

REPORT INFORMATION
  Report Type: 
  Country: US (occurrence: US)
  Receive Date: 20121121
  Receipt Date: 20121121
  Transmission Date: 20130627
  Serious: Yes (Hospitalization)
  Sender: FDA-Public Use
  Company Number: US-US-EMD SERONO, INC.-7176732

PATIENT
  Age: 56 None
  Sex: Female

DRUGS (2)
  1. REBIF [Suspect]
     Indication: MULTIPLE SCLEROSIS
     Route: 058
     Dates: start: 20101226, end: 20121106
  2. TEGRETOL [Suspect]
     Indication: TRIGEMINAL NEURALGIA
     Dates: start: 201111

REACTIONS (7)
  - Toxicity to various agents [Recovered/Resolved]
  - Dysstasia [Recovered/Resolved]
  - Head injury [Unknown]
  - Fall [Unknown]
  - Urinary tract infection [Unknown]
  - Trigeminal neuralgia [Unknown]
  - Multiple sclerosis [Unknown]
